FAERS Safety Report 5097982-4 (Version None)
Quarter: 2006Q3

REPORT INFORMATION
  Report Type: 
  Country: None (occurrence: None)
  Receive Date: 20060905
  Receipt Date: 20060825
  Transmission Date: 20061208
  Serious: Yes (Hospitalization)
  Sender: FDA-Public Use
  Company Number: 2006-02227

PATIENT
  Age: 65 Year
  Sex: Male
  Weight: 61.8 kg

DRUGS (10)
  1. VELCADE [Suspect]
     Indication: NASOPHARYNGEAL CANCER
     Dosage: 2.21 MG, INTRAVENOUS
     Route: 042
     Dates: start: 20060724, end: 20060821
  2. CO-AMOXICLAV (CLAVULANATE POTASSIUM, AMOXICILLIN TRIHYDRATE) [Concomitant]
  3. NYSTATIN [Concomitant]
  4. METFORMIN [Concomitant]
  5. GLIBENCLAMIDE [Concomitant]
  6. LOVASTATIN [Concomitant]
  7. HYDROCHLOROTHIAZIDE [Concomitant]
  8. LAMIVUDINE [Concomitant]
  9. LORAZEPAM [Concomitant]
  10. DIOSMIN [Concomitant]

REACTIONS (7)
  - ACUTE CORONARY SYNDROME [None]
  - CHEST DISCOMFORT [None]
  - DEHYDRATION [None]
  - DIARRHOEA [None]
  - NAUSEA [None]
  - PAROTITIS [None]
  - VOMITING [None]
